FAERS Safety Report 4858204-X (Version None)
Quarter: 2005Q4

REPORT INFORMATION
  Report Type: 
  Country: None (occurrence: None)
  Receive Date: 20051215
  Receipt Date: 20051206
  Transmission Date: 20060501
  Serious: Yes (Other)
  Sender: FDA-Public Use
  Company Number: 2005-11-1110

PATIENT
  Age: 31 Year
  Sex: Female
  Weight: 55 kg

DRUGS (3)
  1. CLARINEX [Suspect]
     Indication: URTICARIA
     Dosage: 1 TABLET QD ORAL
     Route: 048
     Dates: start: 20051115, end: 20051116
  2. PROZAC [Suspect]
     Indication: DEPRESSION
     Dosage: 1 CAPSULE QD ORAL
     Route: 048
     Dates: start: 20051115, end: 20051121
  3. STILNOX TABLETS [Suspect]
     Indication: INSOMNIA
     Dosage: 1 TABLET QD ORAL
     Route: 048
     Dates: start: 20051115, end: 20051121

REACTIONS (3)
  - ANGIONEUROTIC OEDEMA [None]
  - ASTHMA [None]
  - CONDITION AGGRAVATED [None]
